FAERS Safety Report 12488568 (Version 2)
Quarter: 2016Q3

REPORT INFORMATION
  Report Type: Spontaneous
  Country: US (occurrence: US)
  Receive Date: 20160622
  Receipt Date: 20160714
  Transmission Date: 20161109
  Serious: Yes (Death, Hospitalization, Other)
  Sender: FDA-Public Use
  Company Number: PHHY2016US060868

PATIENT
  Age: 55 Year
  Sex: Male

DRUGS (52)
  1. PREDNISONE. [Suspect]
     Active Substance: PREDNISONE
     Indication: CHRONIC GRAFT VERSUS HOST DISEASE
     Dosage: 10 MG, UNK
     Route: 048
     Dates: start: 20150325
  2. CEFADROXIL. [Concomitant]
     Active Substance: CEFADROXIL
     Dosage: 500 MG, Q12H
     Route: 048
  3. AMMONIUM LACTATE. [Concomitant]
     Active Substance: AMMONIUM LACTATE
     Dosage: 1 APPLICATION, BID (2 TIMES A DAY)
     Route: 061
  4. LEVOTHYROXINE. [Concomitant]
     Active Substance: LEVOTHYROXINE
     Indication: THYROID HORMONE REPLACEMENT THERAPY
     Dosage: 25 MCG (0.025 MG), QD (ONCE A DAY)
     Route: 048
  5. MUPIROCIN. [Concomitant]
     Active Substance: MUPIROCIN
     Indication: WOUND TREATMENT
     Dosage: 1 APPLICATION 2 TIMES A DAY
     Route: 061
  6. K-TAB [Concomitant]
     Active Substance: POTASSIUM CHLORIDE
     Indication: SUPPLEMENTATION THERAPY
     Dosage: 20 MEQ (1 TABLET QD (ONCE A DAY)
     Route: 048
  7. K-TAB [Concomitant]
     Active Substance: POTASSIUM CHLORIDE
     Dosage: 20 MEQ (1 TABLET QD (ONCE A DAY))
     Route: 048
  8. PREDNISONE. [Suspect]
     Active Substance: PREDNISONE
     Dosage: 55 MG, QD
     Route: 048
     Dates: end: 20160510
  9. AZITHROMYCIN ANHYDROUS. [Concomitant]
     Active Substance: AZITHROMYCIN ANHYDROUS
     Dosage: 250 MG, QD (EVERY 24 HOURS)
     Route: 048
  10. AMLODIPINE [Concomitant]
     Active Substance: AMLODIPINE BESYLATE
     Indication: HYPERTENSION
     Dosage: 10 MG, QD (EVERY 24 HOURS)
     Route: 048
  11. MYCOPHENOLATE MOFETIL. [Concomitant]
     Active Substance: MYCOPHENOLATE MOFETIL
     Dosage: TAPERED OFF
     Route: 048
     Dates: end: 201503
  12. PROTONIX//OMEPRAZOLE [Concomitant]
     Active Substance: OMEPRAZOLE
     Indication: PROPHYLAXIS AGAINST GASTROINTESTINAL ULCER
     Dosage: 40 MG, QD
     Route: 048
  13. SILVER SULFADIAZINE. [Concomitant]
     Active Substance: SILVER SULFADIAZINE
     Dosage: 1 APPLICATION Q12H (EVERY 12 HOURS)
     Route: 061
  14. CALCIUM CARBONATE. [Concomitant]
     Active Substance: CALCIUM CARBONATE
     Indication: SUPPLEMENTATION THERAPY
     Dosage: 500 MG, BID (2 TIMES A DAY)
     Route: 048
  15. VITAMIN D2 [Concomitant]
     Active Substance: ERGOCALCIFEROL
     Indication: PRODUCT USED FOR UNKNOWN INDICATION
     Dosage: 2000 IU, QD (DAILY)
     Route: 048
  16. PREDNISONE. [Suspect]
     Active Substance: PREDNISONE
     Dosage: UNK UNK, QD
     Route: 048
     Dates: start: 20151106
  17. ACYCLOVIR. [Concomitant]
     Active Substance: ACYCLOVIR
     Indication: ANTIVIRAL PROPHYLAXIS
     Dosage: 400 MG, BID  (2 TIMES A DAY)
     Route: 065
  18. AZITHROMYCIN ANHYDROUS. [Concomitant]
     Active Substance: AZITHROMYCIN ANHYDROUS
     Indication: PROPHYLAXIS
     Dosage: 250 MG, QD, (EVERY 24 HOURS)
     Route: 048
  19. CEFADROXIL. [Concomitant]
     Active Substance: CEFADROXIL
     Indication: PROPHYLAXIS
     Dosage: UNK, Q12H
     Route: 048
  20. PREDNISONE. [Suspect]
     Active Substance: PREDNISONE
     Dosage: 50 MG, QD
     Route: 048
     Dates: start: 20160510, end: 20160526
  21. PREDNISONE. [Suspect]
     Active Substance: PREDNISONE
     Dosage: 40 MG, QD
     Route: 048
  22. FLUCONAZOLE. [Concomitant]
     Active Substance: FLUCONAZOLE
     Indication: PRODUCT USED FOR UNKNOWN INDICATION
     Route: 065
  23. LOVENOX [Concomitant]
     Active Substance: ENOXAPARIN SODIUM
     Indication: PRODUCT USED FOR UNKNOWN INDICATION
     Dosage: 80 MG, BID
     Route: 065
  24. AMMONIUM LACTATE. [Concomitant]
     Active Substance: AMMONIUM LACTATE
     Indication: PROPHYLAXIS
     Dosage: UNK, BID
     Route: 061
  25. MYCOPHENOLATE MOFETIL. [Concomitant]
     Active Substance: MYCOPHENOLATE MOFETIL
     Dosage: 1000 MG, BID
     Route: 048
     Dates: start: 20160605
  26. HYDROMORPHONE [Concomitant]
     Active Substance: HYDROMORPHONE
     Indication: PAIN
     Dosage: 1 DF, Q4H 1 TABLET, PRN (EVERY 4 HOURS, AS NEEDED)
     Route: 048
  27. HYDROMORPHONE [Concomitant]
     Active Substance: HYDROMORPHONE
     Dosage: 1 TABLET Q4H, PRN (EVERY 4 HOURS, AS NEEDED)
     Route: 048
  28. PREDNISONE. [Suspect]
     Active Substance: PREDNISONE
     Dosage: 45 MG, QD (DAILY)
     Route: 048
     Dates: start: 20160526
  29. PENTAMIDINE [Concomitant]
     Active Substance: PENTAMIDINE
     Indication: PROPHYLAXIS
     Dosage: 300 MG, QMO
     Route: 065
  30. PENTAMIDINE [Concomitant]
     Active Substance: PENTAMIDINE
     Dosage: 300 MG, ONCE A MONTH
     Route: 065
  31. DEXAMETHASONE. [Concomitant]
     Active Substance: DEXAMETHASONE
     Indication: GRAFT VERSUS HOST DISEASE
     Dosage: 10 ML, TID (3 TIMES A DAY)
     Route: 048
  32. MYCOPHENOLATE MOFETIL. [Concomitant]
     Active Substance: MYCOPHENOLATE MOFETIL
     Dosage: 1 G, UNK
     Route: 048
     Dates: end: 20160605
  33. SILVER SULFADIAZINE. [Concomitant]
     Active Substance: SILVER SULFADIAZINE
     Indication: WOUND TREATMENT
     Dosage: APPLICATION Q12H (EVERY 12 HOURS)1 DF, Q12H
     Route: 061
  34. VITAMIN D2 [Concomitant]
     Active Substance: ERGOCALCIFEROL
     Dosage: 50000 IU (1.25 MG), ONCE A WEEK
     Route: 048
  35. JAKAFI [Suspect]
     Active Substance: RUXOLITINIB
     Indication: CHRONIC GRAFT VERSUS HOST DISEASE
     Dosage: 5 MG, BID
     Route: 048
  36. JAKAFI [Suspect]
     Active Substance: RUXOLITINIB
     Indication: MANTLE CELL LYMPHOMA
     Dosage: 5 MG, BID
     Route: 048
     Dates: start: 201603, end: 20160427
  37. PREDNISONE. [Suspect]
     Active Substance: PREDNISONE
     Dosage: LOW DOSE
     Route: 048
     Dates: end: 20151106
  38. LOVENOX [Concomitant]
     Active Substance: ENOXAPARIN SODIUM
     Dosage: 80 MG, BID
     Route: 065
     Dates: start: 20160419, end: 20160421
  39. POSACONAZOLE [Concomitant]
     Active Substance: POSACONAZOLE
     Indication: ANTIFUNGAL PROPHYLAXIS
     Dosage: TABLETS QD (EVERY 24 HOURS)
     Route: 048
  40. POSACONAZOLE [Concomitant]
     Active Substance: POSACONAZOLE
     Dosage: 3 TABLETS QD (EVERY 24 HOURS)
     Route: 048
  41. ALBUTEROL. [Concomitant]
     Active Substance: ALBUTEROL
     Indication: DYSPNOEA
     Dosage: 2 DF, 2 PUFFS (4 TIME)
     Route: 055
  42. ALPHA LIPOIC [Concomitant]
     Indication: NEUROPATHY PERIPHERAL
     Dosage: 300 MG,BID  (2 TIMES A DAY)
     Route: 048
  43. MYCOPHENOLATE MOFETIL. [Concomitant]
     Active Substance: MYCOPHENOLATE MOFETIL
     Dosage: UNK
     Route: 048
     Dates: start: 20151229
  44. MUPIROCIN. [Concomitant]
     Active Substance: MUPIROCIN
     Indication: SKIN ULCER
     Dosage: UNK, BID, 1 APPLICATION 2 TIMES A DAY
     Route: 061
  45. BACTRIM [Concomitant]
     Active Substance: SULFAMETHOXAZOLE\TRIMETHOPRIM
     Indication: PRODUCT USED FOR UNKNOWN INDICATION
     Route: 065
  46. LOVENOX [Concomitant]
     Active Substance: ENOXAPARIN SODIUM
     Dosage: 80 MG, BID
     Route: 065
     Dates: start: 20160413, end: 20160418
  47. LABETALOL [Concomitant]
     Active Substance: LABETALOL\LABETALOL HYDROCHLORIDE
     Indication: HYPERTENSION
     Dosage: 400 MG, TID (3 TIMES A DAY) (Q8H)
     Route: 048
     Dates: start: 20160216
  48. MYCOPHENOLATE MOFETIL. [Concomitant]
     Active Substance: MYCOPHENOLATE MOFETIL
     Indication: GRAFT VERSUS HOST DISEASE
     Dosage: TAPERED OFF
     Route: 048
     Dates: end: 20141118
  49. JAKAFI [Suspect]
     Active Substance: RUXOLITINIB
     Indication: OFF LABEL USE
     Dosage: 2.5 MG (0.5 TABLET), BID
     Route: 048
     Dates: start: 20160427
  50. PREDNISONE. [Suspect]
     Active Substance: PREDNISONE
     Dosage: 65 MG, QD
     Route: 048
     Dates: start: 201512
  51. DEXAMETHASONE. [Concomitant]
     Active Substance: DEXAMETHASONE
     Dosage: 10 ML, TID (3 TIMES A DAY)
     Route: 048
  52. OMEGA 3                            /01333901/ [Concomitant]
     Active Substance: FISH OIL\TOCOPHEROL
     Indication: SUPPLEMENTATION THERAPY
     Dosage: 1200 MG Q12H (EVERY 12 HOURS)
     Route: 048

REACTIONS (30)
  - Hypoxia [Recovering/Resolving]
  - Thrombocytopenia [Unknown]
  - Skin ulcer [Unknown]
  - Enterococcal infection [Unknown]
  - Oedema peripheral [Unknown]
  - Leukopenia [Unknown]
  - Off label use [Unknown]
  - Pulmonary embolism [Recovering/Resolving]
  - White blood cell count decreased [Unknown]
  - Back pain [Unknown]
  - Hypoaesthesia [Unknown]
  - Medication error [Unknown]
  - Pneumonia [Recovering/Resolving]
  - Deep vein thrombosis [Unknown]
  - Anal incontinence [Unknown]
  - Fractured sacrum [Unknown]
  - Cough [Unknown]
  - Anaemia [Unknown]
  - Scleroderma [Unknown]
  - Blood immunoglobulin G decreased [Unknown]
  - Epistaxis [Recovered/Resolved]
  - Dyspnoea [Recovering/Resolving]
  - Fall [Unknown]
  - Pancytopenia [Unknown]
  - Weight decreased [Recovering/Resolving]
  - Death [Fatal]
  - Tremor [Unknown]
  - Fatigue [Unknown]
  - Coronavirus test positive [Unknown]
  - Asthenia [Unknown]

NARRATIVE: CASE EVENT DATE: 2016
